FAERS Safety Report 10080221 (Version 2)
Quarter: 2014Q2

REPORT INFORMATION
  Report Type: Spontaneous
  Country: US (occurrence: US)
  Receive Date: 20140415
  Receipt Date: 20140417
  Transmission Date: 20141212
  Serious: Yes (Other)
  Sender: FDA-Public Use
  Company Number: ALCN2014US002375

PATIENT
  Age: 72 Year
  Sex: Male

DRUGS (4)
  1. SIMBRINZA [Suspect]
     Indication: GLAUCOMA
     Dosage: 1 GTT, TID
     Route: 047
     Dates: start: 201308, end: 20130815
  2. TRAVATAN Z [Suspect]
     Indication: GLAUCOMA
     Dosage: 1 GTT, QHS
     Route: 047
     Dates: start: 201307
  3. SYNTHYROID [Concomitant]
     Indication: HYPOTHYROIDISM
     Dosage: UNK
  4. TEGRETOL [Concomitant]
     Indication: TRIGEMINAL NEURALGIA
     Dosage: UNK

REACTIONS (4)
  - Ulcerative keratitis [Recovered/Resolved with Sequelae]
  - Punctate keratitis [Recovered/Resolved with Sequelae]
  - Corneal scar [Recovered/Resolved with Sequelae]
  - Foreign body sensation in eyes [Recovered/Resolved with Sequelae]
